FAERS Safety Report 6119664-X (Version None)
Quarter: 2009Q1

REPORT INFORMATION
  Report Type: 
  Country: None (occurrence: None)
  Receive Date: 20090311
  Receipt Date: 20090303
  Transmission Date: 20090719
  Serious: Yes (Hospitalization)
  Sender: FDA-Public Use
  Company Number: 208203

PATIENT
  Age: 49 Year
  Sex: Female
  Weight: 58 kg

DRUGS (4)
  1. VINORELBINE [Suspect]
     Indication: NON-SMALL CELL LUNG CANCER
     Dosage: 42 MG, INTRAVENOUS, 100 MG INTRAVENOUS
     Route: 042
     Dates: start: 20090116, end: 20090116
  2. VINORELBINE [Suspect]
     Indication: NON-SMALL CELL LUNG CANCER
     Dosage: 42 MG, INTRAVENOUS, 100 MG INTRAVENOUS
     Route: 042
     Dates: start: 20090121
  3. CISPLATIN [Suspect]
     Indication: NON-SMALL CELL LUNG CANCER
     Dosage: 125 MG INTRAVENOUS
     Route: 042
     Dates: start: 20090116, end: 20090116
  4. CITALOPRAM HYDROBROMIDE [Concomitant]

REACTIONS (1)
  - NEUTROPENIC SEPSIS [None]
